FAERS Safety Report 22398091 (Version 1)
Quarter: 2023Q2

REPORT INFORMATION
  Report Type: Spontaneous
  Country: CN (occurrence: CN)
  Receive Date: 20230602
  Receipt Date: 20230602
  Transmission Date: 20230722
  Serious: Yes (Other)
  Sender: FDA-Public Use
  Company Number: CN-SUN PHARMACEUTICAL INDUSTRIES LTD-2023R1-390229

PATIENT
  Age: 53 Year
  Sex: Male

DRUGS (1)
  1. IMATINIB [Suspect]
     Active Substance: IMATINIB
     Indication: Gastrointestinal carcinoma
     Dosage: 400 MILLIGRAM, QD
     Route: 048

REACTIONS (2)
  - Eosinophilia [Recovering/Resolving]
  - Rash [Recovering/Resolving]
